FAERS Safety Report 10935964 (Version 1)
Quarter: 2015Q1

REPORT INFORMATION
  Report Type: Report from Study
  Country: US (occurrence: US)
  Receive Date: 20150320
  Receipt Date: 20150320
  Transmission Date: 20150721
  Serious: No
  Sender: FDA-Public Use
  Company Number: US-ABBVIE-15P-163-1347766-00

PATIENT
  Age: 55 Year
  Sex: Female
  Weight: 101.7 kg

DRUGS (8)
  1. VIEKIRA PAK [Suspect]
     Active Substance: DASABUVIR\OMBITASVIR\PARITAPREVIR\RITONAVIR
     Indication: HEPATITIS C
     Route: 048
     Dates: start: 20150130
  2. RIBAVIRIN. [Concomitant]
     Active Substance: RIBAVIRIN
     Indication: HEPATITIS C
     Dosage: 400 MG EVERY AM AND 600 MG EVERY PM
     Route: 048
     Dates: start: 20150130
  3. DOCUSATE SODIUM. [Concomitant]
     Active Substance: DOCUSATE SODIUM
     Indication: CONSTIPATION
  4. DETROL [Concomitant]
     Active Substance: TOLTERODINE TARTRATE
     Indication: HYPERTONIC BLADDER
  5. NEXIUM [Concomitant]
     Active Substance: ESOMEPRAZOLE MAGNESIUM
     Indication: GASTROOESOPHAGEAL REFLUX DISEASE
  6. VENLAFAXINE [Concomitant]
     Active Substance: VENLAFAXINE HYDROCHLORIDE
     Indication: DEPRESSION
  7. ZYRTEC [Concomitant]
     Active Substance: CETIRIZINE HYDROCHLORIDE
     Indication: HYPERSENSITIVITY
  8. MICARDIS [Concomitant]
     Active Substance: TELMISARTAN
     Indication: HYPERTENSION

REACTIONS (2)
  - Faeces discoloured [Not Recovered/Not Resolved]
  - Dry mouth [Not Recovered/Not Resolved]

NARRATIVE: CASE EVENT DATE: 20150203
